FAERS Safety Report 8168117 (Version 6)
Quarter: 2014Q1

REPORT INFORMATION
  Report Type: Spontaneous
  Country: US (occurrence: US)
  Receive Date: 20111004
  Receipt Date: 20140130
  Transmission Date: 20141002
  Serious: Yes (Hospitalization)
  Sender: FDA-Public Use
  Company Number: US-GLAXOSMITHKLINE-A0835775A

PATIENT
  Age: 61 Year
  Sex: Male
  Weight: 109.5 kg

DRUGS (1)
  1. AVANDIA [Suspect]
     Indication: TYPE 2 DIABETES MELLITUS
     Dosage: 8MG PER DAY
     Route: 048
     Dates: start: 200106, end: 200708

REACTIONS (8)
  - Atrial fibrillation [Not Recovered/Not Resolved]
  - Liver injury [Unknown]
  - Sick sinus syndrome [Unknown]
  - Cardiac failure congestive [Unknown]
  - Ischaemic cardiomyopathy [Unknown]
  - Cardiac murmur [Unknown]
  - Oedema peripheral [Unknown]
  - Coronary artery disease [Unknown]
